FAERS Safety Report 19004331 (Version 5)
Quarter: 2021Q3

REPORT INFORMATION
  Report Type: Spontaneous
  Country: PL (occurrence: PL)
  Receive Date: 20210312
  Receipt Date: 20210908
  Transmission Date: 20211014
  Serious: Yes (Hospitalization, Other)
  Sender: FDA-Public Use
  Company Number: PL-MYLANLABS-2021M1014040

PATIENT
  Age: 54 Year
  Sex: Female

DRUGS (17)
  1. RISPERIDONE. [Interacting]
     Active Substance: RISPERIDONE
     Indication: SCHIZOPHRENIA
     Dosage: 4 MILLIGRAM, QD
  2. NEBIVOLOL. [Concomitant]
     Active Substance: NEBIVOLOL
     Indication: HYPERTENSION
     Dosage: 5 MILLIGRAM, QD
  3. PERINDOPRIL [Interacting]
     Active Substance: PERINDOPRIL
     Indication: HYPERTENSION
  4. CELECOXIB. [Interacting]
     Active Substance: CELECOXIB
     Dosage: UNK
  5. NEBIVOLOL. [Interacting]
     Active Substance: NEBIVOLOL
     Indication: HYPERTENSION
     Dosage: 5 MILLIGRAM, QD
  6. NEBIVOLOL. [Concomitant]
     Active Substance: NEBIVOLOL
     Indication: BACK PAIN
  7. ATORVASTATIN [Interacting]
     Active Substance: ATORVASTATIN
     Indication: DYSLIPIDAEMIA
     Dosage: 40 MILLIGRAM, QD (40MG/DAY)
  8. GINKGO BILOBA [Interacting]
     Active Substance: GINKGO
     Indication: SOMNOLENCE
     Dosage: 240 MILLIGRAM, QD
  9. RISPERIDONE. [Concomitant]
     Active Substance: RISPERIDONE
     Indication: SCHIZOPHRENIA
     Dosage: 4 MILLIGRAM, QD
  10. CELECOXIB. [Interacting]
     Active Substance: CELECOXIB
     Dosage: 200 MILLIGRAM
     Route: 065
  11. ATORVASTATIN [Concomitant]
     Active Substance: ATORVASTATIN
     Indication: DYSLIPIDAEMIA
     Dosage: 40 MILLIGRAM, QD
  12. ROSUVASTATIN. [Interacting]
     Active Substance: ROSUVASTATIN
     Indication: PRODUCT USED FOR UNKNOWN INDICATION
     Dosage: UNK
  13. CELECOXIB. [Interacting]
     Active Substance: CELECOXIB
     Indication: BACK PAIN
     Dosage: 200 MILLIGRAM, QD
     Route: 065
  14. NEBIVOLOL. [Concomitant]
     Active Substance: NEBIVOLOL
     Indication: DYSLIPIDAEMIA
  15. AMLODIPINE [Suspect]
     Active Substance: AMLODIPINE BESYLATE
     Indication: HYPERTENSION
     Dosage: 10 MILLIGRAM, QD (10MG/DAY)
     Route: 065
  16. METOPROLOL. [Interacting]
     Active Substance: METOPROLOL
     Indication: BRADYCARDIA
     Dosage: UNK
  17. PERINDOPRIL [Interacting]
     Active Substance: PERINDOPRIL
     Indication: LIP SWELLING
     Dosage: UNK

REACTIONS (6)
  - Swollen tongue [Recovered/Resolved]
  - Drug interaction [Recovered/Resolved]
  - Lip oedema [Unknown]
  - Bradycardia [Recovered/Resolved]
  - Angioedema [Unknown]
  - Off label use [Unknown]
